FAERS Safety Report 6953827-6 (Version None)
Quarter: 2010Q3

REPORT INFORMATION
  Report Type: 
  Country: None (occurrence: None)
  Receive Date: 20100829
  Receipt Date: 20100628
  Transmission Date: 20110219
  Serious: No
  Sender: FDA-Public Use
  Company Number: US-ABBOTT-10P-163-0653714-00

PATIENT
  Sex: Female

DRUGS (2)
  1. NIASPAN [Suspect]
     Indication: CORONARY ARTERY DISEASE
     Dosage: AT BED TIME
     Route: 048
     Dates: start: 20100101
  2. CRESTOR [Concomitant]
     Indication: PRODUCT USED FOR UNKNOWN INDICATION

REACTIONS (3)
  - BURNING SENSATION [None]
  - CAROTID ARTERIOSCLEROSIS [None]
  - FLUSHING [None]
